FAERS Safety Report 16170654 (Version 2)
Quarter: 2019Q2

REPORT INFORMATION
  Report Type: Report from Study
  Country: IT (occurrence: IT)
  Receive Date: 20190408
  Receipt Date: 20190416
  Transmission Date: 20190711
  Serious: Yes (Hospitalization, Other)
  Sender: FDA-Public Use
  Company Number: IT-GLAXOSMITHKLINE-IT2019061498

PATIENT
  Age: 35 Year
  Sex: Male

DRUGS (2)
  1. DICLOFENAC DIETHYLAMMONIUM SALT [Suspect]
     Active Substance: DICLOFENAC DIETHYLAMINE
     Indication: MUSCULOSKELETAL PAIN
     Dosage: UNK
     Route: 003
     Dates: start: 20190325, end: 20190329
  2. OKI [Suspect]
     Active Substance: KETOPROFEN LYSINE
     Indication: MUSCULOSKELETAL PAIN
     Dosage: 160 MG, QD
     Route: 048
     Dates: start: 20190327, end: 20190329

REACTIONS (2)
  - Melaena [Unknown]
  - Abdominal pain upper [Unknown]

NARRATIVE: CASE EVENT DATE: 20190331
